FAERS Safety Report 15893354 (Version 1)
Quarter: 2019Q1

REPORT INFORMATION
  Report Type: Spontaneous
  Country: GB (occurrence: GB)
  Receive Date: 20190130
  Receipt Date: 20190130
  Transmission Date: 20190417
  Serious: Yes (Other)
  Sender: FDA-Public Use
  Company Number: GB-CONCORDIA PHARMACEUTICALS INC.-E2B_00018457

PATIENT
  Age: 30 Year
  Sex: Female
  Weight: 54 kg

DRUGS (14)
  1. ACCORD-UK CO-TRIMOXAZOLE [Suspect]
     Active Substance: SULFAMETHOXAZOLE\TRIMETHOPRIM
     Indication: PROPHYLAXIS
     Route: 048
     Dates: start: 20181221
  2. BUDESONIDE AND FORMOTEROL FUMARATE [Suspect]
     Active Substance: BUDESONIDE\FORMOTEROL FUMARATE
     Indication: ASTHMA
     Dosage: 1 OR 2 PUFFS TWICE A DAY
     Route: 055
  3. FOLIC ACID. [Concomitant]
     Active Substance: FOLIC ACID
  4. INFLECTRA [Concomitant]
     Active Substance: INFLIXIMAB-DYYB
  5. BUSCOPAN [Concomitant]
     Active Substance: BUTYLSCOPOLAMINE BROMIDE
  6. ADCAL-D3 [Concomitant]
     Active Substance: CALCIUM CARBONATE\CHOLECALCIFEROL
  7. IBUPROFEN. [Concomitant]
     Active Substance: IBUPROFEN
  8. PREDNISOLONE. [Suspect]
     Active Substance: PREDNISOLONE
     Indication: INFLAMMATORY BOWEL DISEASE
     Dosage: REDUCING FROM 40MG TO 0MG (CURRENTLY 30MG)
     Route: 048
     Dates: start: 20181219
  9. AZATHIOPRINE. [Concomitant]
     Active Substance: AZATHIOPRINE
  10. OCTASA [Concomitant]
     Active Substance: MESALAMINE
  11. OMEPRAZOLE. [Concomitant]
     Active Substance: OMEPRAZOLE
  12. FERROUS SULFATE. [Concomitant]
     Active Substance: FERROUS SULFATE
  13. PARACETAMOL [Concomitant]
     Active Substance: ACETAMINOPHEN
  14. CETIRIZINE DIHYDROCHLORIDE [Concomitant]
     Active Substance: CETIRIZINE HYDROCHLORIDE

REACTIONS (4)
  - Oral pustule [Unknown]
  - Oropharyngeal pain [Unknown]
  - Oral candidiasis [Not Recovered/Not Resolved]
  - Throat irritation [Unknown]

NARRATIVE: CASE EVENT DATE: 20190113
